FAERS Safety Report 13954353 (Version 2)
Quarter: 2017Q3

REPORT INFORMATION
  Report Type: Report from Study
  Country: BR (occurrence: BR)
  Receive Date: 20170911
  Receipt Date: 20170911
  Transmission Date: 20171128
  Serious: Yes (Hospitalization)
  Sender: FDA-Public Use
  Company Number: PHHY2017BR132968

PATIENT
  Sex: Male
  Weight: 56 kg

DRUGS (1)
  1. DUOTRAVATAN [BAC] [Suspect]
     Active Substance: TIMOLOL MALEATE\TRAVOPROST
     Indication: GLAUCOMA
     Dosage: 1 DRP, QD (EACH EYE)
     Route: 047
     Dates: start: 2013

REACTIONS (2)
  - Product packaging quantity issue [Unknown]
  - Myocardial infarction [Unknown]
